FAERS Safety Report 9274411 (Version 2)
Quarter: 2013Q2

REPORT INFORMATION
  Report Type: Spontaneous
  Country: US (occurrence: US)
  Receive Date: 20130506
  Receipt Date: 20130531
  Transmission Date: 20140414
  Serious: No
  Sender: FDA-Public Use
  Company Number: US-B.I. PHARMACEUTICALS,INC./RIDGEFIELD-2013-BI-12237BP

PATIENT
  Age: 58 Year
  Sex: Male
  Weight: 73 kg

DRUGS (4)
  1. MIRAPEX [Suspect]
     Indication: RESTLESS LEGS SYNDROME
     Dosage: 2.25 MG
     Route: 048
     Dates: start: 2008
  2. MIRAPEX [Suspect]
     Dosage: 4.5 MG
     Dates: start: 20130204
  3. PRAVASTATIN [Concomitant]
     Dosage: 80 MG
     Route: 048
  4. LISINOPRIL [Concomitant]
     Dosage: 20 MG
     Route: 048

REACTIONS (2)
  - Limb discomfort [Not Recovered/Not Resolved]
  - Musculoskeletal discomfort [Not Recovered/Not Resolved]
